FAERS Safety Report 23513894 (Version 1)
Quarter: 2024Q1

REPORT INFORMATION
  Report Type: Spontaneous
  Country: US (occurrence: None)
  Receive Date: 20240212
  Receipt Date: 20240212
  Transmission Date: 20240410
  Serious: Yes (Hospitalization)
  Sender: FDA-Public Use
  Company Number: None

PATIENT
  Age: 57 Year
  Sex: Female
  Weight: 87 kg

DRUGS (3)
  1. KESIMPTA [Suspect]
     Active Substance: OFATUMUMAB
     Indication: Multiple sclerosis
     Dosage: FREQUENCY : MONTHLY;?
     Route: 058
     Dates: start: 20221110, end: 20240119
  2. HYDROCODONE/ACETAMINOPHEN [Concomitant]
  3. LOSARTAN [Concomitant]

REACTIONS (4)
  - Visual impairment [None]
  - Chest pain [None]
  - Pyrexia [None]
  - Injection related reaction [None]

NARRATIVE: CASE EVENT DATE: 20240119
